FAERS Safety Report 4684999-4 (Version None)
Quarter: 2005Q2

REPORT INFORMATION
  Report Type: 
  Country: None (occurrence: None)
  Receive Date: 20050608
  Receipt Date: 20050526
  Transmission Date: 20051028
  Serious: Yes (Other)
  Sender: FDA-Public Use
  Company Number: GB-JNJFOC-20040204335

PATIENT
  Sex: Female
  Weight: 109 kg

DRUGS (19)
  1. REMICADE [Suspect]
     Indication: VASCULITIS
     Route: 042
  2. MMF [Concomitant]
     Dosage: 1.250 G (AM) X 1.000 (PM)
  3. PREDNISOLONE [Concomitant]
  4. TEGRETOL [Concomitant]
  5. FRUSEMIDE [Concomitant]
  6. ALLOPURINOL [Concomitant]
  7. NABUMETONE [Concomitant]
  8. MST [Concomitant]
  9. LISINOPRIL [Concomitant]
  10. ATORVASTATIN CALCIUM [Concomitant]
  11. AMLODIPINE [Concomitant]
  12. RANITIDINE [Concomitant]
  13. FLUOXETINE [Concomitant]
  14. WARFARIN [Concomitant]
  15. GLYCERYL NITRATE [Concomitant]
  16. TERBUTALINE [Concomitant]
  17. GAVISCON [Concomitant]
  18. GAVISCON [Concomitant]
  19. NEBULIZER [Concomitant]

REACTIONS (12)
  - ARTHRALGIA [None]
  - COORDINATION ABNORMAL [None]
  - DIZZINESS [None]
  - DYSARTHRIA [None]
  - FATIGUE [None]
  - HEADACHE [None]
  - HEMIPARESIS [None]
  - INFUSION RELATED REACTION [None]
  - PAIN [None]
  - SWOLLEN TONGUE [None]
  - VOMITING [None]
  - WHEEZING [None]
